FAERS Safety Report 10184895 (Version 1)
Quarter: 2014Q2

REPORT INFORMATION
  Report Type: Spontaneous
  Country: US (occurrence: None)
  Receive Date: 20140519
  Receipt Date: 20140519
  Transmission Date: 20141212
  Serious: Yes (Death)
  Sender: FDA-Public Use
  Company Number: INS201405-000073

PATIENT
  Sex: Male
  Weight: 101.1 kg

DRUGS (11)
  1. SUBSYS SUBLINGUAL SPRAY (FENTANYL) [Suspect]
     Indication: BREAKTHROUGH PAIN
     Route: 060
     Dates: start: 20131212
  2. DURABAC(SALYCILAMIDE, PHENYLTOLAXAMINE, PHENYLTOLOXAMINE, CAFFEINE)(SALYCILAMIDE, PHENYLTOLAXAMINE, PHENYLTOLOXAMINE, CAFFEINE) [Concomitant]
  3. LYRICA (PREGABALIN) (PREGABALIN) [Concomitant]
  4. OXYCODONE (OXYCODONE) (OXYCODONE) [Concomitant]
  5. ZANAFLEX (TIZANIDINE) (TIZANIDINE) [Concomitant]
  6. ASPIRIN (ACETYLSALICYLIC ACID) (ACETYLSALICYLIC ACID) [Concomitant]
  7. CYMBALTA [Concomitant]
  8. CLONAZEPAM (CLONAZEPAM) (CLONAZEPAM) [Concomitant]
  9. LOPRESSOR (METOPROLOL TARTRATE) (METOPROLOL TARTRATE) [Concomitant]
  10. PLAQUENIL (HYDROXYCHLOROQUINE) (HYDROXYCHLOROQUINE) [Concomitant]
  11. SPIRIVA [Concomitant]

REACTIONS (1)
  - Death [None]
